FAERS Safety Report 10527620 (Version 1)
Quarter: 2014Q4

REPORT INFORMATION
  Report Type: Spontaneous
  Country: BR (occurrence: None)
  Receive Date: 20141016
  Receipt Date: 20141016
  Transmission Date: 20150528
  Serious: Yes (Hospitalization)
  Sender: FDA-Public Use
  Company Number: FK201404084

PATIENT

DRUGS (4)
  1. PYRIMETHAMINE [Suspect]
     Active Substance: PYRIMETHAMINE
     Indication: CONGENITAL TOXOPLASMOSIS
  2. ZIDOVUDINE. [Concomitant]
     Active Substance: ZIDOVUDINE
     Indication: CONGENITAL TOXOPLASMOSIS
  3. LEUCOVORIN CALCIUM. [Suspect]
     Active Substance: LEUCOVORIN CALCIUM
     Indication: CONGENITAL TOXOPLASMOSIS
  4. SULFADIAZINE. [Suspect]
     Active Substance: SULFADIAZINE
     Indication: CONGENITAL TOXOPLASMOSIS

REACTIONS (3)
  - Anaemia megaloblastic [None]
  - Neutropenia [None]
  - Thrombocytopenia [None]
